FAERS Safety Report 15208917 (Version 2)
Quarter: 2018Q3

REPORT INFORMATION
  Report Type: Spontaneous
  Country: JP (occurrence: JP)
  Receive Date: 20180727
  Receipt Date: 20180808
  Transmission Date: 20181010
  Serious: Yes (Other)
  Sender: FDA-Public Use
  Company Number: JP-TAKEDA-2018MPI009909

PATIENT
  Age: 76 Year
  Sex: Male

DRUGS (2)
  1. VELCADE [Suspect]
     Active Substance: BORTEZOMIB
     Indication: PLASMA CELL MYELOMA
     Dosage: 1.3 MG, UNK
     Route: 065
     Dates: start: 20180710
  2. DEXAMETHASONE. [Concomitant]
     Active Substance: DEXAMETHASONE
     Indication: PLASMA CELL MYELOMA
     Dosage: 20 MG, QD
     Route: 065
     Dates: start: 20180710, end: 20180711

REACTIONS (3)
  - Hypoxia [Recovering/Resolving]
  - Chronic obstructive pulmonary disease [Unknown]
  - Lung disorder [Unknown]

NARRATIVE: CASE EVENT DATE: 201807
